FAERS Safety Report 12212152 (Version 2)
Quarter: 2016Q2

REPORT INFORMATION
  Report Type: Report from Study
  Country: US (occurrence: US)
  Receive Date: 20160325
  Receipt Date: 20160406
  Transmission Date: 20160815
  Serious: Yes (Hospitalization)
  Sender: FDA-Public Use
  Company Number: US-ACTELION-A-NJ2016-133314

PATIENT
  Age: 54 Year
  Sex: Female

DRUGS (6)
  1. TRACLEER [Suspect]
     Active Substance: BOSENTAN
     Indication: PULMONARY ARTERIAL HYPERTENSION
     Dosage: 62.5 MG, BID
     Route: 048
  2. SILDENAFIL. [Concomitant]
     Active Substance: SILDENAFIL
     Dosage: 20 MG, TID
     Route: 048
  3. METHOTREXATE [Concomitant]
     Active Substance: METHOTREXATE
     Dosage: UNK
  4. PREDNISONE. [Concomitant]
     Active Substance: PREDNISONE
     Dosage: 10 MG, QD
     Route: 048
  5. COUMADIN [Concomitant]
     Active Substance: WARFARIN SODIUM
  6. TRACLEER [Suspect]
     Active Substance: BOSENTAN
     Dosage: 125 MG, BID
     Route: 048

REACTIONS (19)
  - Clostridium difficile colitis [Unknown]
  - Liver function test increased [Unknown]
  - Alanine aminotransferase increased [Unknown]
  - Oedema [Unknown]
  - Cough [Unknown]
  - International normalised ratio increased [Unknown]
  - Nausea [Unknown]
  - Abdominal tenderness [Unknown]
  - Pleural effusion [Unknown]
  - Atelectasis [Unknown]
  - Abdominal pain [Unknown]
  - Cholecystectomy [Unknown]
  - Vomiting [Unknown]
  - Chills [Unknown]
  - Aspartate aminotransferase increased [Unknown]
  - Rales [Unknown]
  - Hypokalaemia [Unknown]
  - Cholecystitis acute [Unknown]
  - Pyrexia [Unknown]
